FAERS Safety Report 9778984 (Version 1)
Quarter: 2013Q4

REPORT INFORMATION
  Report Type: Spontaneous
  Country: US (occurrence: US)
  Receive Date: 20131223
  Receipt Date: 20131223
  Transmission Date: 20140711
  Serious: Yes (Hospitalization)
  Sender: FDA-Public Use
  Company Number: PHHY2013US147566

PATIENT
  Age: 10 Year
  Sex: Male

DRUGS (1)
  1. ZOLPIDEM [Suspect]
     Dosage: 1 OT, 7 TABLETS (85 MG TOTAL) WHICH WERE MISSING FROM A PRESCRIPTION BOTTLE

REACTIONS (10)
  - Nystagmus [Recovered/Resolved]
  - Respiration abnormal [Recovered/Resolved]
  - Blood pressure decreased [Recovered/Resolved]
  - Depressed level of consciousness [Recovered/Resolved]
  - Vomiting [Recovered/Resolved]
  - Sedation [Recovered/Resolved]
  - Somnolence [Recovered/Resolved]
  - Unresponsive to stimuli [Recovered/Resolved]
  - Miosis [Recovered/Resolved]
  - Overdose [Recovered/Resolved]
